FAERS Safety Report 5813516-8 (Version None)
Quarter: 2008Q3

REPORT INFORMATION
  Report Type: 
  Country: None (occurrence: None)
  Receive Date: 20080716
  Receipt Date: 20080716
  Transmission Date: 20090109
  Serious: Yes (Hospitalization)
  Sender: FDA-Public Use
  Company Number: None

PATIENT
  Age: 60 Year
  Sex: Male

DRUGS (1)
  1. NAPROXEN [Suspect]
     Indication: PAIN
     Dosage: 250 MG PRN PO
     Route: 048
     Dates: start: 20080608, end: 20080609

REACTIONS (5)
  - ANGIOEDEMA [None]
  - CHEST PAIN [None]
  - COUGH [None]
  - DRUG HYPERSENSITIVITY [None]
  - PYREXIA [None]
